FAERS Safety Report 6803916-1 (Version None)
Quarter: 2010Q2

REPORT INFORMATION
  Report Type: 
  Country: None (occurrence: None)
  Receive Date: 20100628
  Receipt Date: 20060405
  Transmission Date: 20101027
  Serious: Yes (Other)
  Sender: FDA-Public Use
  Company Number: US-PFIZER INC-2006047872

PATIENT

DRUGS (1)
  1. SUTENT [Suspect]
     Indication: ILL-DEFINED DISORDER
     Route: 065

REACTIONS (4)
  - ANAEMIA [None]
  - HYPERCALCAEMIA [None]
  - PANCYTOPENIA [None]
  - PLATELET DISORDER [None]
